FAERS Safety Report 5477434-X (Version None)
Quarter: 2007Q4

REPORT INFORMATION
  Report Type: 
  Country: None (occurrence: None)
  Receive Date: 20071004
  Receipt Date: 20070925
  Transmission Date: 20080405
  Serious: Yes (Hospitalization, Other)
  Sender: FDA-Public Use
  Company Number: US-PFIZER INC-2007081447

PATIENT
  Sex: Female
  Weight: 65.8 kg

DRUGS (4)
  1. CHANTIX [Suspect]
     Indication: SMOKING CESSATION THERAPY
  2. ATENOLOL [Concomitant]
  3. MAXZIDE [Concomitant]
  4. CITALOPRAM [Concomitant]

REACTIONS (1)
  - PAIN [None]
